FAERS Safety Report 9168171 (Version 1)
Quarter: 2013Q1

REPORT INFORMATION
  Report Type: Spontaneous
  Country: DE (occurrence: None)
  Receive Date: 20130308
  Receipt Date: 20130308
  Transmission Date: 20140127
  Serious: Yes (Other)
  Sender: FDA-Public Use
  Company Number: AUR-APL-2013-01966

PATIENT
  Age: 31 Year
  Sex: Female
  Weight: 74 kg

DRUGS (4)
  1. METFORMIN [Suspect]
     Indication: POLYCYSTIC OVARIES
     Dosage: (850 MG,2 IN 1 D)
     Route: 048
  2. MELPERONE (MELPERONE) [Suspect]
     Route: 048
     Dates: start: 20111012
  3. VENLAFAXINE (VENLAFAXINE) [Suspect]
     Route: 048
     Dates: start: 20111012
  4. FEMIBION (CALCIUM) [Concomitant]

REACTIONS (8)
  - Anal atresia [None]
  - Gallbladder disorder [None]
  - Vaginal disorder [None]
  - Maternal drugs affecting foetus [None]
  - Atrial septal defect [None]
  - Right aortic arch [None]
  - Spine malformation [None]
  - Congenital uterine anomaly [None]
